FAERS Safety Report 5425128-9 (Version None)
Quarter: 2007Q3

REPORT INFORMATION
  Report Type: 
  Country: None (occurrence: None)
  Receive Date: 20070824
  Receipt Date: 20070813
  Transmission Date: 20080115
  Serious: Yes (Hospitalization, Other)
  Sender: FDA-Public Use
  Company Number: US-ROCHE-450539

PATIENT
  Age: 32 Year
  Sex: Female

DRUGS (5)
  1. ACCUTANE [Suspect]
     Route: 065
     Dates: start: 19960101, end: 19970101
  2. ACCUTANE [Suspect]
     Dosage: RESTART AT 40 MG ONCE DAILY FOR TWO DAYS. FOLLOWED BY 80 MG ONCE DAILY FOR ONE DAY.
     Route: 065
     Dates: start: 19980101, end: 19980101
  3. ACCUTANE [Suspect]
     Route: 065
     Dates: start: 19990101, end: 19990601
  4. ACCUTANE [Suspect]
     Route: 065
     Dates: start: 20000512
  5. INDERAL [Concomitant]
     Indication: HYPERTENSION

REACTIONS (8)
  - ARTHRITIS [None]
  - CARDIAC DISORDER [None]
  - CROHN'S DISEASE [None]
  - FIBROMYALGIA [None]
  - MIGRAINE [None]
  - NIGHT BLINDNESS [None]
  - PYODERMA GANGRENOSUM [None]
  - RHEUMATOID ARTHRITIS [None]
